FAERS Safety Report 8021125 (Version 4)
Quarter: 2022Q4

REPORT INFORMATION
  Report Type: Spontaneous
  Country: US (occurrence: None)
  Receive Date: 20110705
  Receipt Date: 20221116
  Transmission Date: 20230112
  Serious: Yes (Other)
  Sender: FDA-Public Use
  Company Number: US-ROCHE-785437

PATIENT
  Age: 69 Year
  Sex: Female

DRUGS (15)
  1. BONIVA [Suspect]
     Active Substance: IBANDRONATE SODIUM
     Indication: Osteoporosis
     Route: 048
     Dates: start: 2007
  2. BONIVA [Suspect]
     Active Substance: IBANDRONATE SODIUM
     Route: 048
     Dates: start: 20080618, end: 20090630
  3. FOSAMAX [Suspect]
     Active Substance: ALENDRONATE SODIUM
     Indication: Osteoporosis
     Route: 065
  4. SYNTHROID [Concomitant]
     Active Substance: LEVOTHYROXINE SODIUM
  5. VYTORIN [Concomitant]
     Active Substance: EZETIMIBE\SIMVASTATIN
  6. DETROL LA [Concomitant]
     Active Substance: TOLTERODINE TARTRATE
  7. CLARITIN [Concomitant]
     Active Substance: LORATADINE
  8. METOPROLOL [Concomitant]
     Active Substance: METOPROLOL
  9. MIACALCIN [Concomitant]
     Active Substance: CALCITONIN SALMON
  10. KLOR-CON M20 [Concomitant]
     Active Substance: POTASSIUM CHLORIDE
  11. DIAZEPAM [Concomitant]
     Active Substance: DIAZEPAM
  12. CELEBREX [Concomitant]
     Active Substance: CELECOXIB
  13. LIPITOR [Concomitant]
     Active Substance: ATORVASTATIN CALCIUM
  14. HYDROCHLOROTHIAZIDE [Concomitant]
     Active Substance: HYDROCHLOROTHIAZIDE
  15. DIOVAN [Concomitant]
     Active Substance: VALSARTAN

REACTIONS (18)
  - Low turnover osteopathy [Unknown]
  - Femur fracture [Unknown]
  - Anxiety [Unknown]
  - Emotional distress [Unknown]
  - Fall [Unknown]
  - Stress fracture [Unknown]
  - Osteonecrosis [Unknown]
  - Pain in extremity [Recovering/Resolving]
  - Peripheral swelling [Unknown]
  - Neck pain [Unknown]
  - Pollakiuria [Unknown]
  - Nausea [Unknown]
  - Insomnia [Unknown]
  - Dysgeusia [Unknown]
  - Urinary tract infection [Unknown]
  - Synovial cyst [Unknown]
  - Ligament sprain [Unknown]
  - Meniscus injury [Unknown]

NARRATIVE: CASE EVENT DATE: 20070605
